FAERS Safety Report 8930401 (Version 1)
Quarter: 2012Q4

REPORT INFORMATION
  Report Type: 
  Country: IT (occurrence: IT)
  Receive Date: 20121128
  Receipt Date: 20121128
  Transmission Date: 20130627
  Serious: Yes (Hospitalization)
  Sender: FDA-Public Use
  Company Number: IT-GLAXOSMITHKLINE-B0848162A

PATIENT
  Age: 86 Year
  Sex: Female

DRUGS (4)
  1. ARIXTRA [Suspect]
     Indication: DEEP VEIN THROMBOSIS
     Route: 058
     Dates: start: 20121029, end: 20121114
  2. CARDIOASPIRIN [Suspect]
     Indication: DEEP VEIN THROMBOSIS
     Route: 048
     Dates: start: 20121001, end: 20121114
  3. MEDROL [Suspect]
     Indication: PRODUCT USED FOR UNKNOWN INDICATION
     Route: 048
     Dates: start: 20121029, end: 20121114
  4. DELAPRIDE [Concomitant]
     Route: 048
     Dates: start: 20121001, end: 20121114

REACTIONS (2)
  - Haematemesis [Unknown]
  - Abdominal pain [Unknown]
